FAERS Safety Report 14605364 (Version 2)
Quarter: 2018Q2

REPORT INFORMATION
  Report Type: Spontaneous
  Country: US (occurrence: US)
  Receive Date: 20180306
  Receipt Date: 20180427
  Transmission Date: 20180711
  Serious: Yes (Other)
  Sender: FDA-Public Use
  Company Number: US-CELGENEUS-USA-20180210042

PATIENT
  Sex: Female
  Weight: 73.09 kg

DRUGS (3)
  1. REVLIMID [Suspect]
     Active Substance: LENALIDOMIDE
     Indication: NON-HODGKIN^S LYMPHOMA
     Dosage: 10 MILLIGRAM
     Route: 048
     Dates: start: 201801
  2. REVLIMID [Suspect]
     Active Substance: LENALIDOMIDE
     Dosage: 5 MILLIGRAM
     Route: 048
     Dates: start: 201802
  3. REVLIMID [Suspect]
     Active Substance: LENALIDOMIDE
     Indication: LYMPHOMA
     Dosage: 20 MILLIGRAM
     Route: 048
     Dates: start: 20171206

REACTIONS (6)
  - Lip squamous cell carcinoma [Unknown]
  - White blood cell count increased [Not Recovered/Not Resolved]
  - Squamous cell carcinoma of skin [Unknown]
  - Squamous cell carcinoma of skin [Not Recovered/Not Resolved]
  - Pruritus [Unknown]
  - Full blood count decreased [Unknown]
